FAERS Safety Report 18800369 (Version 1)
Quarter: 2021Q1

REPORT INFORMATION
  Report Type: Spontaneous
  Country: CA (occurrence: CA)
  Receive Date: 20210128
  Receipt Date: 20210128
  Transmission Date: 20210419
  Serious: No
  Sender: FDA-Public Use
  Company Number: None

PATIENT
  Age: 27 Year
  Sex: Male
  Weight: 71.19 kg

DRUGS (1)
  1. INVEGA SUSTENNA [Suspect]
     Active Substance: PALIPERIDONE PALMITATE
     Indication: PRODUCT USED FOR UNKNOWN INDICATION
     Dates: start: 20210125, end: 20210125

REACTIONS (4)
  - Heart rate irregular [None]
  - Respiration abnormal [None]
  - Blood pressure abnormal [None]
  - Drug ineffective [None]

NARRATIVE: CASE EVENT DATE: 20210125
